FAERS Safety Report 14647738 (Version 2)
Quarter: 2018Q1

REPORT INFORMATION
  Report Type: Report from Study
  Country: DE (occurrence: DE)
  Receive Date: 20180316
  Receipt Date: 20180323
  Transmission Date: 20180509
  Serious: Yes (Hospitalization)
  Sender: FDA-Public Use
  Company Number: DE-PFIZER INC-2018102010

PATIENT
  Age: 74 Year
  Sex: Male

DRUGS (17)
  1. ABRAXANE [Suspect]
     Active Substance: PACLITAXEL
     Dosage: 246 MG, UNK
     Route: 041
  2. MCP [Concomitant]
     Active Substance: METOCLOPRAMIDE HYDROCHLORIDE
     Indication: DECREASED APPETITE
  3. NOVALGIN (METAMIZOLE SODIUM) [Concomitant]
     Active Substance: METAMIZOLE SODIUM
     Indication: PAIN
     Dosage: 120 DROPS, ONCE A DAY
     Route: 065
  4. IBUPROFEN. [Concomitant]
     Active Substance: IBUPROFEN
     Indication: PAIN
     Dosage: 400 MG, UNK
     Route: 065
  5. GLIMEPIRID [Concomitant]
     Active Substance: GLIMEPIRIDE
     Dosage: 1 MILLIGRAM, ONCE A DAY
     Route: 065
  6. GEMCITABINE HYDROCHLORIDE. [Suspect]
     Active Substance: GEMCITABINE HYDROCHLORIDE
     Indication: PANCREATIC CARCINOMA METASTATIC
     Dosage: 1970 MG, UNK
     Route: 065
  7. SIMVASTATIN. [Concomitant]
     Active Substance: SIMVASTATIN
     Dosage: 10 MILLIGRAM, ONCE A DAY
     Route: 065
  8. METFORMIN [Concomitant]
     Active Substance: METFORMIN HYDROCHLORIDE
     Dosage: 1500 MILLIGRAM, ONCE A DAY
     Route: 065
  9. ZOPICLON [Concomitant]
     Active Substance: ZOPICLONE
     Indication: SLEEP DISORDER
  10. CLEXANE [Concomitant]
     Active Substance: ENOXAPARIN SODIUM
     Dosage: 1.6 MILLILITER, ONCE A DAY
     Route: 058
  11. AMOXICILLIN. [Concomitant]
     Active Substance: AMOXICILLIN
     Dosage: 2250 MILLIGRAM, ONCE A DAY
     Route: 065
     Dates: start: 20171017
  12. ABRAXANE [Suspect]
     Active Substance: PACLITAXEL
     Indication: PANCREATIC CARCINOMA METASTATIC
     Dosage: 750 MG, UNK
     Route: 041
  13. ZOPICLON [Concomitant]
     Active Substance: ZOPICLONE
     Indication: DECREASED APPETITE
     Dosage: 7.5 MG, UNK
     Route: 065
  14. MCP [Concomitant]
     Active Substance: METOCLOPRAMIDE HYDROCHLORIDE
     Indication: SLEEP DISORDER
     Dosage: 30 MILLIGRAM, ONCE A DAY
     Route: 065
  15. TOREM [Concomitant]
     Active Substance: TORSEMIDE
     Dosage: 15 MILLIGRAM, ONCE A DAY
     Route: 065
  16. MIRTAZAPIN [Concomitant]
     Active Substance: MIRTAZAPINE
     Indication: SLEEP DISORDER
     Dosage: 15 MG, UNK
     Route: 065
  17. MIRTAZAPIN [Concomitant]
     Active Substance: MIRTAZAPINE
     Indication: DECREASED APPETITE

REACTIONS (3)
  - Erysipelas [Recovered/Resolved]
  - Erysipelas [Recovered/Resolved]
  - White blood cell count decreased [Recovered/Resolved]

NARRATIVE: CASE EVENT DATE: 20171018
